FAERS Safety Report 10241980 (Version 1)
Quarter: 2014Q2

REPORT INFORMATION
  Report Type: Spontaneous
  Country: US (occurrence: US)
  Receive Date: 20140617
  Receipt Date: 20140617
  Transmission Date: 20141212
  Serious: No
  Sender: FDA-Public Use
  Company Number: US-BAYER-2014-090292

PATIENT
  Age: 65 Year
  Sex: Male
  Weight: 60 kg

DRUGS (1)
  1. ALEVE CAPLET [Suspect]
     Indication: POST PROCEDURAL INFLAMMATION
     Dosage: 1 DF, QD
     Route: 048
     Dates: start: 20140611

REACTIONS (1)
  - Medication error [Unknown]
